FAERS Safety Report 24403054 (Version 1)
Quarter: 2024Q4

REPORT INFORMATION
  Report Type: Spontaneous
  Country: GB (occurrence: GB)
  Receive Date: 20241007
  Receipt Date: 20241007
  Transmission Date: 20250114
  Serious: Yes (Hospitalization, Other)
  Sender: NOVARTIS
  Company Number: GB-002147023-NVSC2024GB194526

PATIENT

DRUGS (1)
  1. KISQALI [Suspect]
     Active Substance: RIBOCICLIB
     Indication: Product used for unknown indication
     Dosage: UNK (ONLY ONE CYCLE)
     Route: 065

REACTIONS (5)
  - Herpes zoster oticus [Unknown]
  - Herpes virus infection [Unknown]
  - Bell^s palsy [Unknown]
  - Neutropenia [Unknown]
  - Herpes zoster [Unknown]
